FAERS Safety Report 24377272 (Version 1)
Quarter: 2024Q3

REPORT INFORMATION
  Report Type: Spontaneous
  Country: GB (occurrence: GB)
  Receive Date: 20240930
  Receipt Date: 20240930
  Transmission Date: 20241017
  Serious: Yes (Other)
  Sender: AUROBINDO
  Company Number: GB-MHRA-TPP1248272C3401001YC1726742400617

PATIENT
  Age: 69 Year
  Sex: Female
  Weight: 76 kg

DRUGS (18)
  1. POLYETHYLENE GLYCOLS [Suspect]
     Active Substance: POLYETHYLENE GLYCOLS
     Indication: Product used for unknown indication
     Dosage: UNK
     Route: 065
     Dates: start: 20240709
  2. NITROFURANTOIN [Concomitant]
     Active Substance: NITROFURANTOIN
     Indication: Product used for unknown indication
     Dosage: 1 DOSAGE FORM, TWO TIMES A DAY (TAKE ONE TWICE DAILY)
     Route: 065
     Dates: start: 20240627, end: 20240630
  3. TRIMETHOPRIM [Concomitant]
     Active Substance: TRIMETHOPRIM
     Indication: Product used for unknown indication
     Dosage: 1 DOSAGE FORM, TWO TIMES A DAY (1 TABLET TO BE TAKEN TWICE DAILY ORAL)
     Route: 048
     Dates: start: 20240709, end: 20240715
  4. Citramag [Concomitant]
     Indication: Product used for unknown indication
     Dosage: 1 DOSAGE FORM (TAKE ONE EVERY 4 WEEKS)
     Route: 065
     Dates: start: 20240917
  5. Phosphates [Concomitant]
     Indication: Product used for unknown indication
     Dosage: 1 DOSAGE FORM, EVERY WEEK (INSERT ONE WEEKLY PRN)
     Route: 065
     Dates: start: 20240808, end: 20240905
  6. FUROSEMIDE [Concomitant]
     Active Substance: FUROSEMIDE
     Indication: Product used for unknown indication
     Dosage: 1 DOSAGE FORM, EVERY MORNING (TAKE ONE EACH MORNING)
     Route: 065
     Dates: start: 20240829, end: 20240912
  7. AMITRIPTYLINE HYDROCHLORIDE [Concomitant]
     Active Substance: AMITRIPTYLINE HYDROCHLORIDE
     Indication: Product used for unknown indication
     Dosage: 3 DOSAGE FORM, AT BED TIME (TAKKE THREE (30MG) AT NIGHT  )
     Route: 065
     Dates: start: 20200930
  8. CARBIMAZOLE [Concomitant]
     Active Substance: CARBIMAZOLE
     Indication: Product used for unknown indication
     Dosage: 1 DOSAGE FORM, DAILY
     Route: 065
     Dates: start: 20230728
  9. LANSOPRAZOLE [Concomitant]
     Active Substance: LANSOPRAZOLE
     Indication: Product used for unknown indication
     Dosage: UNK UNK, TWO TIMES A DAY
     Route: 065
     Dates: start: 20230728
  10. Tylex [Concomitant]
     Indication: Product used for unknown indication
     Dosage: TAKE 1 OR 2 4 TIMES/DAY
     Route: 065
     Dates: start: 20230728
  11. ATORVASTATIN [Concomitant]
     Active Substance: ATORVASTATIN
     Indication: Product used for unknown indication
     Dosage: 1 DOSAGE FORM, DAILY (TAKE ONE DAILY)
     Route: 065
     Dates: start: 20230918
  12. BISACODYL [Concomitant]
     Active Substance: BISACODYL
     Indication: Product used for unknown indication
     Dosage: 2 DOSAGE FORM, TWO TIMES A DAY (2 TABLETS TWICE DAILY)
     Route: 065
     Dates: start: 20230918
  13. DOCUSATE SODIUM [Concomitant]
     Active Substance: DOCUSATE SODIUM
     Indication: Product used for unknown indication
     Dosage: 1 DOSAGE FORM, TWO TIMES A DAY (1 BD)
     Route: 065
     Dates: start: 20230918
  14. EPILIM [Concomitant]
     Active Substance: VALPROATE SODIUM
     Indication: Product used for unknown indication
     Dosage: 1 DOSAGE FORM, AT BED TIME (TAKE ONE EACH NIGHT)
     Route: 065
     Dates: start: 20230918
  15. GLYCERIN [Concomitant]
     Active Substance: GLYCERIN
     Indication: Product used for unknown indication
     Dosage: 1 DOSAGE FORM, AS NECESSARY (INSERT ONE AS NEEDED)
     Route: 065
     Dates: start: 20230918
  16. BACLOFEN [Concomitant]
     Active Substance: BACLOFEN
     Indication: Ill-defined disorder
     Dosage: 1 DOSAGE FORM, 3 TIMES A DAY (1 TDS)
     Route: 065
     Dates: start: 20240117
  17. FENTANYL [Concomitant]
     Active Substance: FENTANYL\FENTANYL CITRATE
     Indication: Product used for unknown indication
     Dosage: APPLY ONE EVERY 72 HOURS
     Route: 065
     Dates: start: 20240430
  18. SODIUM PICOSULFATE [Concomitant]
     Active Substance: SODIUM PICOSULFATE
     Indication: Product used for unknown indication
     Dosage: 5-10ML TWICE A WEEK, UP TO EVERY OTHER OR EVERY...
     Route: 065
     Dates: start: 20240709

REACTIONS (2)
  - Nausea [Recovered/Resolved]
  - Drug hypersensitivity [Unknown]
